FAERS Safety Report 18327093 (Version 3)
Quarter: 2021Q1

REPORT INFORMATION
  Report Type: Spontaneous
  Country: JP (occurrence: JP)
  Receive Date: 20200929
  Receipt Date: 20210308
  Transmission Date: 20210419
  Serious: Yes (Hospitalization, Other)
  Sender: FDA-Public Use
  Company Number: JP-JNJFOC-20200935750

PATIENT
  Age: 4 Decade
  Sex: Male

DRUGS (11)
  1. LAMIVUDINE/ABACAVIR SULFATE [Concomitant]
     Active Substance: ABACAVIR SULFATE\LAMIVUDINE
     Indication: PRODUCT USED FOR UNKNOWN INDICATION
     Dosage: DOSE UNKNOWN
     Route: 048
     Dates: start: 20101204
  2. LAMIVUDINE/ABACAVIR SULFATE [Concomitant]
     Active Substance: ABACAVIR SULFATE\LAMIVUDINE
     Dosage: DOSE UNKNOWN
     Route: 048
     Dates: start: 2012
  3. PREZISTA [Suspect]
     Active Substance: DARUNAVIR ETHANOLATE
     Indication: PRODUCT USED FOR UNKNOWN INDICATION
     Route: 048
     Dates: start: 2009, end: 2011
  4. PREZISTA [Suspect]
     Active Substance: DARUNAVIR ETHANOLATE
     Route: 048
     Dates: start: 2012
  5. LAMIVUDINE/ABACAVIR SULFATE [Concomitant]
     Active Substance: ABACAVIR SULFATE\LAMIVUDINE
     Dosage: DOSE UNKNOWN
     Route: 048
     Dates: start: 20130319
  6. RITONAVIR. [Concomitant]
     Active Substance: RITONAVIR
     Dosage: DOSE UNKNOWN
     Route: 048
     Dates: start: 2012
  7. PREZISTA [Suspect]
     Active Substance: DARUNAVIR ETHANOLATE
     Route: 048
     Dates: start: 20130319
  8. EMTRICITABINE/TENOFOVIR DISOPROXIL FUMARATE [Concomitant]
     Active Substance: EMTRICITABINE\TENOFOVIR DISOPROXIL FUMARATE
     Indication: PRODUCT USED FOR UNKNOWN INDICATION
     Dosage: DOSE UNKNOWN
     Route: 048
     Dates: start: 2009, end: 2011
  9. RITONAVIR. [Concomitant]
     Active Substance: RITONAVIR
     Indication: PRODUCT USED FOR UNKNOWN INDICATION
     Dosage: DOSE UNKNOWN
     Route: 048
     Dates: start: 2009, end: 2011
  10. DOLUTEGRAVIR SODIUM/ABACAVIR SULFATE/LAMIVUDINE [Concomitant]
     Indication: PRODUCT USED FOR UNKNOWN INDICATION
     Dosage: DOSE UNKNOWN
     Route: 048
     Dates: start: 20160115
  11. RITONAVIR. [Concomitant]
     Active Substance: RITONAVIR
     Dosage: DOSE UNKNOWN
     Route: 048
     Dates: start: 20130319

REACTIONS (2)
  - Pneumocystis jirovecii pneumonia [Unknown]
  - Pneumocystis jirovecii pneumonia [Unknown]

NARRATIVE: CASE EVENT DATE: 20130305
